FAERS Safety Report 6291206-8 (Version None)
Quarter: 2009Q3

REPORT INFORMATION
  Report Type: 
  Country: None (occurrence: None)
  Receive Date: 20090730
  Receipt Date: 20090720
  Transmission Date: 20100115
  Serious: Yes (Other)
  Sender: FDA-Public Use
  Company Number: NO-PFIZER INC-2009243908

PATIENT
  Age: 67 Year

DRUGS (6)
  1. NEURONTIN [Suspect]
     Dosage: 300 MG, AS NEEDED
     Route: 048
  2. LIPITOR [Suspect]
     Dosage: 80 MG, 1X/DAY
     Route: 048
  3. COZAAR [Suspect]
     Dosage: UNK
     Route: 048
     Dates: end: 20090629
  4. ALBYL-E [Concomitant]
     Route: 048
  5. AMLODIPINE [Concomitant]
     Dosage: 10 G, 1X/DAY
     Route: 048
  6. METFORMIN [Concomitant]
     Indication: DIABETES MELLITUS
     Dosage: UNK
     Route: 048
     Dates: end: 20090628

REACTIONS (2)
  - ANGIOEDEMA [None]
  - DYSPHONIA [None]
